FAERS Safety Report 14544805 (Version 1)
Quarter: 2018Q1

REPORT INFORMATION
  Report Type: Spontaneous
  Country: IT (occurrence: IT)
  Receive Date: 20180217
  Receipt Date: 20180217
  Transmission Date: 20180509
  Serious: Yes (Hospitalization)
  Sender: FDA-Public Use
  Company Number: IT-AUROBINDO-AUR-APL-2018-007799

PATIENT
  Age: 37 Year
  Sex: Male

DRUGS (2)
  1. GABAPENTIN CAPSULES [Suspect]
     Active Substance: GABAPENTIN
     Indication: PRODUCT USED FOR UNKNOWN INDICATION
     Dosage: ()
     Route: 048
  2. SEREUPIN [Suspect]
     Active Substance: PAROXETINE HYDROCHLORIDE
     Indication: PRODUCT USED FOR UNKNOWN INDICATION
     Dosage: ()
     Route: 048

REACTIONS (3)
  - Drug abuse [Unknown]
  - Tachypnoea [Unknown]
  - Agitation [Unknown]

NARRATIVE: CASE EVENT DATE: 20161102
